FAERS Safety Report 18236253 (Version 3)
Quarter: 2020Q4

REPORT INFORMATION
  Report Type: Report from Study
  Country: None (occurrence: US)
  Receive Date: 20200906
  Receipt Date: 20201215
  Transmission Date: 20210113
  Serious: Yes (Hospitalization, Other)
  Sender: FDA-Public Use
  Company Number: US-ABBVIE-20K-163-3551152-00

PATIENT
  Age: 67 Year
  Sex: Female
  Weight: 63.56 kg

DRUGS (2)
  1. HUMIRA [Suspect]
     Active Substance: ADALIMUMAB
     Indication: RHEUMATOID ARTHRITIS
     Route: 058
     Dates: start: 2012, end: 202006
  2. HUMIRA [Suspect]
     Active Substance: ADALIMUMAB
     Route: 058
     Dates: start: 202007

REACTIONS (5)
  - Foot fracture [Recovered/Resolved]
  - Joint dislocation [Unknown]
  - Pneumonia [Recovered/Resolved]
  - Surgery [Unknown]
  - Spinal fusion acquired [Recovering/Resolving]

NARRATIVE: CASE EVENT DATE: 202001
